FAERS Safety Report 5700994-8 (Version None)
Quarter: 2008Q2

REPORT INFORMATION
  Report Type: 
  Country: None (occurrence: None)
  Receive Date: 20080410
  Receipt Date: 20080402
  Transmission Date: 20081010
  Serious: Yes (Other)
  Sender: FDA-Public Use
  Company Number: FR-JNJFOC-20071202635

PATIENT
  Sex: Male
  Weight: 80 kg

DRUGS (7)
  1. TOPIRAMATE [Suspect]
     Indication: EPILEPSY
  2. DIHYDAN [Concomitant]
     Indication: EPILEPSY
     Route: 048
  3. TEGRETOL [Concomitant]
     Indication: EPILEPSY
     Route: 048
  4. SABRIL [Concomitant]
     Indication: EPILEPSY
     Route: 048
  5. NEURONTIN [Concomitant]
     Indication: EPILEPSY
     Route: 048
  6. URBANYL [Concomitant]
     Indication: EPILEPSY
     Route: 048
  7. RIVOTRIL [Concomitant]
     Indication: EPILEPSY
     Route: 048

REACTIONS (1)
  - CATARACT [None]
